FAERS Safety Report 13524816 (Version 1)
Quarter: 2017Q2

REPORT INFORMATION
  Report Type: Spontaneous
  Country: US (occurrence: US)
  Receive Date: 20170508
  Receipt Date: 20170508
  Transmission Date: 20170830
  Serious: No
  Sender: FDA-Public Use
  Company Number: US-ROCHE-1124393

PATIENT
  Sex: Male

DRUGS (5)
  1. AVASTIN [Suspect]
     Active Substance: BEVACIZUMAB
     Indication: LUNG NEOPLASM MALIGNANT
     Route: 065
  2. ALIMTA [Concomitant]
     Active Substance: PEMETREXED DISODIUM
  3. TAXOTERE [Concomitant]
     Active Substance: DOCETAXEL
  4. TAXOL [Concomitant]
     Active Substance: PACLITAXEL
  5. ERBITUX [Concomitant]
     Active Substance: CETUXIMAB

REACTIONS (1)
  - Disease progression [Unknown]
